FAERS Safety Report 4606534-9 (Version None)
Quarter: 2005Q2

REPORT INFORMATION
  Report Type: 
  Country: None (occurrence: None)
  Receive Date: 20050223
  Receipt Date: 20040916
  Transmission Date: 20051028
  Serious: Yes (Other)
  Sender: FDA-Public Use
  Company Number: WAES 0409USA01536

PATIENT
  Age: 60 Year
  Sex: Female

DRUGS (3)
  1. ZOCOR [Suspect]
     Dosage: SEE IMAGE
     Route: 048
  2. . [Concomitant]
  3. VERAPAMIL [Concomitant]

REACTIONS (1)
  - BLOOD CREATINE PHOSPHOKINASE INCREASED [None]
